FAERS Safety Report 6506818-3 (Version None)
Quarter: 2009Q4

REPORT INFORMATION
  Report Type: 
  Country: None (occurrence: None)
  Receive Date: 20091221
  Receipt Date: 20091214
  Transmission Date: 20100525
  Serious: Yes (Hospitalization)
  Sender: FDA-Public Use
  Company Number: US-B.I. PHARMACEUTICALS,INC./RIDGEFIELD-2009-BP-14382BP

PATIENT
  Age: 76 Year
  Sex: Female

DRUGS (4)
  1. MIRAPEX [Suspect]
     Indication: PARKINSON'S DISEASE
     Dosage: 4 MG
     Route: 048
     Dates: start: 20010101
  2. LEVODOPA [Concomitant]
     Indication: PARKINSON'S DISEASE
  3. DIAZEPAM [Concomitant]
     Indication: NERVOUSNESS
  4. AMANTADINE HCL [Concomitant]
     Indication: PARKINSON'S DISEASE

REACTIONS (1)
  - HIP FRACTURE [None]
